FAERS Safety Report 22011387 (Version 1)
Quarter: 2023Q1

REPORT INFORMATION
  Report Type: Report from Study
  Country: US (occurrence: US)
  Receive Date: 20230220
  Receipt Date: 20230220
  Transmission Date: 20230417
  Serious: No
  Sender: FDA-Public Use
  Company Number: US-AURINIA PHARMACEUTICALS INC.-AUR-002801

PATIENT
  Age: 31 Year
  Sex: Female

DRUGS (2)
  1. LUPKYNIS [Suspect]
     Active Substance: VOCLOSPORIN
     Indication: Product used for unknown indication
     Dosage: 7.9 MILLIGRAM IN AM,  31.6 MILLIGRAM IN PM
     Route: 048
     Dates: start: 20220401
  2. LUPKYNIS [Suspect]
     Active Substance: VOCLOSPORIN
     Dosage: 7.9 MILLIGRAM IN AM,  31.6 MILLIGRAM IN PM
     Route: 048
     Dates: start: 20221221, end: 20230105

REACTIONS (5)
  - Muscle spasms [Unknown]
  - Asthenia [Unknown]
  - Irritability [Unknown]
  - Alopecia [Unknown]
  - Off label use [Unknown]

NARRATIVE: CASE EVENT DATE: 20220401
